FAERS Safety Report 5781336-9 (Version None)
Quarter: 2008Q2

REPORT INFORMATION
  Report Type: 
  Country: None (occurrence: None)
  Receive Date: 20080619
  Receipt Date: 20080605
  Transmission Date: 20081010
  Serious: Yes (Hospitalization, Other)
  Sender: FDA-Public Use
  Company Number: 234666J08USA

PATIENT
  Age: 43 Year
  Sex: Female
  Weight: 101.1521 kg

DRUGS (7)
  1. REBIF [Suspect]
     Indication: MULTIPLE SCLEROSIS
     Dosage: 8.8 MCG, 3 IN 1 WEEKS, SUBCUTANTEOUS
     Route: 058
     Dates: start: 20080412, end: 20080506
  2. GLIPIZIDE [Concomitant]
  3. LIPITOR [Concomitant]
  4. METFORMIN HCL [Concomitant]
  5. LISINOPRIL [Concomitant]
  6. LYRICA [Concomitant]
  7. FERROUS SULFATE TAB [Concomitant]

REACTIONS (6)
  - ANAEMIA [None]
  - HEART RATE INCREASED [None]
  - HYPOTENSION [None]
  - OEDEMA [None]
  - SEPSIS [None]
  - URINARY TRACT INFECTION [None]
